FAERS Safety Report 25783690 (Version 1)
Quarter: 2025Q3

REPORT INFORMATION
  Report Type: Spontaneous
  Country: US (occurrence: None)
  Receive Date: 20250910
  Receipt Date: 20250910
  Transmission Date: 20251020
  Serious: No
  Sender: ALEXION PHARMACEUTICALS
  Company Number: US-PROCTER+GAMBLE-PH25013932

PATIENT
  Age: 80 Year
  Sex: Female

DRUGS (2)
  1. PRILOSEC OTC [Suspect]
     Active Substance: OMEPRAZOLE MAGNESIUM
  2. Nervive nerve relief [Concomitant]
     Indication: Neuropathy peripheral
     Dosage: 1 TABLET, 3 /DAY
     Dates: start: 202507, end: 202507

REACTIONS (1)
  - Product use in unapproved indication [Unknown]
